FAERS Safety Report 7490750-5 (Version None)
Quarter: 2011Q2

REPORT INFORMATION
  Report Type: 
  Country: None (occurrence: None)
  Receive Date: 20110519
  Receipt Date: 20091130
  Transmission Date: 20111010
  Serious: Yes (Hospitalization, Other)
  Sender: FDA-Public Use
  Company Number: US-BAYER-200941092NA

PATIENT
  Age: 77 Year
  Sex: Male
  Weight: 68 kg

DRUGS (26)
  1. TRASYLOL [Suspect]
     Dosage: 70 ML INFUSION
     Route: 042
     Dates: start: 20040628, end: 20040628
  2. RANITIDINE [Concomitant]
     Indication: GASTROOESOPHAGEAL REFLUX DISEASE
     Dosage: 150 MG, QD
     Route: 048
     Dates: start: 20030101, end: 20040101
  3. ZOCOR [Concomitant]
     Indication: LIPIDS INCREASED
  4. IMDUR [Concomitant]
     Indication: ANGINA PECTORIS
     Dosage: 30 MG, UNK
     Route: 048
     Dates: start: 19900101, end: 20040101
  5. CALCIUM CHLORIDE [Concomitant]
     Dosage: UNK
     Dates: start: 20040628
  6. FENTANYL [Concomitant]
     Dosage: UNK
     Dates: start: 20040628
  7. NORVASC [Concomitant]
     Indication: CARDIAC DISORDER
     Dosage: 25 MG, QD
     Route: 048
  8. DOPAMINE HCL [Concomitant]
     Dosage: UNK
     Dates: start: 20040628
  9. CEFAZOLIN [Concomitant]
     Dosage: UNK
     Dates: start: 20040628
  10. TRASYLOL [Suspect]
     Indication: CORONARY ARTERY BYPASS
     Dosage: 1 ML, ONCE (INITIAL)
     Route: 042
     Dates: start: 20040628, end: 20040628
  11. PRECEDEX [Concomitant]
     Dosage: UNK
     Dates: start: 20040628
  12. RED BLOOD CELLS [Concomitant]
     Dosage: 2 U, UNK
     Route: 042
     Dates: start: 20040628, end: 20040628
  13. ZOCOR [Concomitant]
     Indication: CARDIAC DISORDER
  14. HEPARIN [Concomitant]
     Dosage: UNK
     Dates: start: 20040628
  15. PROTAMINE SULFATE [Concomitant]
     Dosage: UNK
     Dates: start: 20040628
  16. OMNIPAQUE 140 [Concomitant]
     Indication: CATHETERISATION CARDIAC
     Dosage: UNK
     Dates: start: 20040525
  17. TRASYLOL [Suspect]
     Indication: AORTIC VALVE REPLACEMENT
     Dosage: 200 ML OVER 20 MINUTES (LOADING)
     Route: 042
     Dates: start: 20040628, end: 20040628
  18. PAPAVERINE [Concomitant]
     Dosage: UNK
     Dates: start: 20040628
  19. ZOCOR [Concomitant]
     Indication: BLOOD CHOLESTEROL INCREASED
     Dosage: 20 MG, HS
     Route: 048
     Dates: end: 20080101
  20. OXYBUTYNIN [Concomitant]
     Dosage: 5 MG, UNK
  21. BENADRYL [Concomitant]
     Dosage: 50 MG, UNK
     Dates: start: 20040628
  22. ACETYLSALICYLIC ACID SRT [Concomitant]
     Dosage: 81 MG, QD
     Route: 048
     Dates: start: 19900101
  23. TRAZODONE HCL [Concomitant]
     Indication: SLEEP DISORDER THERAPY
     Dosage: 50 MG, QD
     Route: 048
     Dates: start: 20030101, end: 20040101
  24. ISOFLURANE [Concomitant]
     Dosage: UNK
     Dates: start: 20040628
  25. VERSED [Concomitant]
     Dosage: UNK
     Dates: start: 20040628
  26. PROPOFOL [Concomitant]
     Dosage: UNK
     Dates: start: 20040628

REACTIONS (12)
  - RENAL IMPAIRMENT [None]
  - RENAL INJURY [None]
  - UNEVALUABLE EVENT [None]
  - ANXIETY [None]
  - FEAR [None]
  - INJURY [None]
  - RENAL FAILURE [None]
  - EMOTIONAL DISTRESS [None]
  - ANHEDONIA [None]
  - STRESS [None]
  - MULTI-ORGAN FAILURE [None]
  - PAIN [None]
